FAERS Safety Report 8844465 (Version 1)
Quarter: 2012Q4

REPORT INFORMATION
  Report Type: Spontaneous
  Country: GB (occurrence: None)
  Receive Date: 20121012
  Receipt Date: 20121012
  Transmission Date: 20130627
  Serious: Yes (Disabling)
  Sender: FDA-Public Use
  Company Number: AUR-APL-2012-04346

PATIENT
  Age: 71 Year
  Sex: Male
  Weight: 90 kg

DRUGS (2)
  1. TERBINAFINE [Suspect]
     Indication: FUNGAL INFECTION OF NAIL
     Route: 048
     Dates: start: 20120801, end: 20120904
  2. OMEPRAZOLE (OMEPRAZOLE) [Concomitant]

REACTIONS (2)
  - Circumoral oedema [None]
  - Urticaria [None]
